FAERS Safety Report 9637758 (Version 1)
Quarter: 2013Q4

REPORT INFORMATION
  Report Type: Spontaneous
  Country: GR (occurrence: GR)
  Receive Date: 20131022
  Receipt Date: 20131022
  Transmission Date: 20140711
  Serious: Yes (Hospitalization, Other)
  Sender: FDA-Public Use
  Company Number: GR-JNJFOC-20131010037

PATIENT
  Age: 82 Year
  Sex: Female

DRUGS (4)
  1. HALOPERIDOL [Suspect]
     Indication: COGNITIVE DISORDER
     Route: 065
  2. HALOPERIDOL [Suspect]
     Indication: COGNITIVE DISORDER
     Route: 065
  3. HALOPERIDOL [Suspect]
     Indication: DEPRESSION
     Route: 065
  4. HALOPERIDOL [Suspect]
     Indication: DEPRESSION
     Route: 065

REACTIONS (3)
  - Parkinsonian gait [Not Recovered/Not Resolved]
  - Tremor [Unknown]
  - Bradykinesia [Unknown]
